FAERS Safety Report 21363279 (Version 1)
Quarter: 2022Q3

REPORT INFORMATION
  Report Type: Report from Study
  Country: US (occurrence: US)
  Receive Date: 20220922
  Receipt Date: 20220922
  Transmission Date: 20221026
  Serious: No
  Sender: FDA-Public Use
  Company Number: US-ABBVIE-4128399

PATIENT
  Sex: Female

DRUGS (4)
  1. HUMIRA [Suspect]
     Active Substance: ADALIMUMAB
     Indication: Rheumatoid arthritis
     Route: 058
  2. Pfizer/BioNTech [Concomitant]
     Indication: COVID-19 immunisation
     Dosage: DOSAGE: 1 ONCE FIRST DOSE
     Route: 030
  3. Pfizer/BioNTech [Concomitant]
     Indication: COVID-19 immunisation
     Dosage: DOSAGE: 1 ONCE SECOND DOSE
     Route: 030
  4. Pfizer/BioNTech [Concomitant]
     Indication: COVID-19 immunisation
     Dosage: DOSAGE: 1 ONCE BOOSTER DOSE
     Route: 030

REACTIONS (3)
  - Arthralgia [Recovering/Resolving]
  - Back pain [Recovering/Resolving]
  - Musculoskeletal stiffness [Unknown]
